FAERS Safety Report 9451152 (Version 2)
Quarter: 2013Q4

REPORT INFORMATION
  Report Type: Spontaneous
  Country: JP (occurrence: JP)
  Receive Date: 20130809
  Receipt Date: 20131022
  Transmission Date: 20140711
  Serious: Yes (Other)
  Sender: FDA-Public Use
  Company Number: JP-TEVA-418398ISR

PATIENT
  Age: 70 Year
  Sex: Male

DRUGS (2)
  1. CISPLATIN [Suspect]
     Indication: GASTRIC CANCER
     Route: 041
     Dates: start: 201003, end: 201012
  2. CAMPTO [Suspect]
     Indication: GASTRIC CANCER
     Route: 041
     Dates: start: 201003, end: 201012

REACTIONS (4)
  - Acute myeloid leukaemia [Unknown]
  - Second primary malignancy [Unknown]
  - Pneumonitis [Recovering/Resolving]
  - Thrombocytopenia [Unknown]
